FAERS Safety Report 19045879 (Version 1)
Quarter: 2021Q1

REPORT INFORMATION
  Report Type: Spontaneous
  Country: US (occurrence: US)
  Receive Date: 20210322
  Receipt Date: 20210322
  Transmission Date: 20210420
  Serious: No
  Sender: FDA-Public Use
  Company Number: US-SUNOVION-2021SUN000875

PATIENT
  Sex: Male

DRUGS (1)
  1. LATUDA [Suspect]
     Active Substance: LURASIDONE HYDROCHLORIDE
     Dosage: 40 MG, EVERY OTHER DAY
     Route: 048

REACTIONS (3)
  - Abnormal behaviour [Unknown]
  - Mania [Unknown]
  - Inappropriate schedule of product administration [Unknown]
